FAERS Safety Report 9753686 (Version 1)
Quarter: 2013Q4

REPORT INFORMATION
  Report Type: Spontaneous
  Country: US (occurrence: US)
  Receive Date: 20131213
  Receipt Date: 20131213
  Transmission Date: 20140711
  Serious: No
  Sender: FDA-Public Use
  Company Number: US-GILEAD-2009-0026062

PATIENT
  Age: 84 Year
  Sex: Female

DRUGS (13)
  1. LETAIRIS [Suspect]
     Indication: SYSTEMIC SCLEROSIS
     Route: 048
     Dates: start: 20090803, end: 20090910
  2. XANAX [Concomitant]
  3. NORVASC [Concomitant]
  4. ADVAIR [Concomitant]
  5. ALBUTEROL [Concomitant]
  6. DORZOLAMIDE [Concomitant]
  7. SINGULAIR [Concomitant]
  8. PROAIR [Concomitant]
  9. ACTONEL [Concomitant]
  10. ZOCOR [Concomitant]
  11. DIOVAN [Concomitant]
  12. OMEPRAZOLE [Concomitant]
  13. IPRATROPIUM [Concomitant]

REACTIONS (1)
  - Oedema peripheral [Recovered/Resolved]
